FAERS Safety Report 7348056-0 (Version None)
Quarter: 2011Q1

REPORT INFORMATION
  Report Type: 
  Country: None (occurrence: None)
  Receive Date: 20110302
  Receipt Date: 20110223
  Transmission Date: 20110831
  Serious: Yes (Disabling)
  Sender: FDA-Public Use
  Company Number: PHBS2007JP20117

PATIENT
  Age: 78 Year
  Sex: Male

DRUGS (1)
  1. VISUDYNE [Suspect]
     Indication: MACULAR DEGENERATION
     Dates: start: 20061026, end: 20061026

REACTIONS (2)
  - VISUAL ACUITY REDUCED [None]
  - RETINAL PIGMENT EPITHELIAL TEAR [None]
